FAERS Safety Report 5744307-4 (Version None)
Quarter: 2008Q2

REPORT INFORMATION
  Report Type: 
  Country: None (occurrence: None)
  Receive Date: 20080520
  Receipt Date: 20080519
  Transmission Date: 20081010
  Serious: Yes (Other)
  Sender: FDA-Public Use
  Company Number: US-BRISTOL-MYERS SQUIBB COMPANY-14195614

PATIENT
  Age: 38 Year
  Sex: Female

DRUGS (3)
  1. CYCLOPHOSPHAMIDE [Suspect]
     Indication: LYMPHOMA
     Dosage: DOSAGE FORM=1 G/M SUP (2) ON DAY 1
     Dates: start: 19990101
  2. FLUDARABINE PHOSPHATE [Suspect]
     Indication: LYMPHOMA
     Dosage: 1 DOSAGE FORM= 20 MG/M SUP (2) ON DAYS 1 TO 5.
     Dates: start: 19990101
  3. RITUXIMAB [Suspect]
     Indication: LYMPHOMA
     Dates: start: 19990101

REACTIONS (2)
  - CHRONIC SINUSITIS [None]
  - HYPOGAMMAGLOBULINAEMIA [None]
